FAERS Safety Report 23710381 (Version 1)
Quarter: 2024Q2

REPORT INFORMATION
  Report Type: Spontaneous
  Country: SA (occurrence: SA)
  Receive Date: 20240405
  Receipt Date: 20240405
  Transmission Date: 20240716
  Serious: Yes (Hospitalization, Other)
  Sender: FDA-Public Use
  Company Number: SA-NOVITIUMPHARMA-2024SANVP00401

PATIENT
  Age: 17 Year
  Sex: Male

DRUGS (1)
  1. DIGOXIN [Suspect]
     Active Substance: DIGOXIN
     Indication: Product used for unknown indication
     Dosage: 192 TABLETS OF ORAL DIGOXIN 0.25MG
     Route: 048

REACTIONS (4)
  - Toxicity to various agents [Recovering/Resolving]
  - Overdose [Unknown]
  - Suicide attempt [Unknown]
  - Mental status changes [Recovered/Resolved]
